FAERS Safety Report 8838411 (Version 2)
Quarter: 2012Q4

REPORT INFORMATION
  Report Type: Report from Study
  Country: BR (occurrence: BR)
  Receive Date: 20121012
  Receipt Date: 20121126
  Transmission Date: 20130627
  Serious: Yes (Other)
  Sender: FDA-Public Use
  Company Number: BR-PFIZER INC-2012252955

PATIENT
  Age: 63 Year
  Sex: Female

DRUGS (7)
  1. LIPITOR [Suspect]
     Indication: HIGH CHOLESTEROL
     Dosage: 10 mg (one tablet), once daily
     Route: 048
     Dates: start: 2010, end: 2010
  2. VYTORIN [Suspect]
     Dosage: UNK
     Dates: start: 2010
  3. ATENOLOL [Concomitant]
     Indication: DIURETIC THERAPY
     Dosage: (one tablet), (in the morning) once daily
     Dates: start: 2009
  4. DIOVAN TRIPLE [Concomitant]
     Indication: BLOOD PRESSURE INCREASED
     Dosage: 1 DF (one tablet), daily
     Dates: start: 2009
  5. EXODUS [Concomitant]
     Indication: ANXIETY
     Dosage: 2 DF, 1x/day
     Dates: start: 201104
  6. FRONTAL [Concomitant]
     Indication: ANXIETY
     Dosage: 1 DF, 1x/day
     Dates: start: 201104
  7. FRONTAL [Concomitant]
     Indication: PANIC DISORDER

REACTIONS (4)
  - Thyroiditis [Unknown]
  - Malaise [Unknown]
  - Nausea [Unknown]
  - Dizziness [Unknown]
